FAERS Safety Report 7792417-2 (Version None)
Quarter: 2011Q4

REPORT INFORMATION
  Report Type: 
  Country: None (occurrence: None)
  Receive Date: 20111003
  Receipt Date: 20110927
  Transmission Date: 20120403
  Serious: Yes (Other)
  Sender: FDA-Public Use
  Company Number: JP-PFIZER INC-2011219152

PATIENT
  Age: 69 Year
  Sex: Male
  Weight: 56 kg

DRUGS (2)
  1. VARENICLINE TARTRATE [Suspect]
     Dosage: UNK
     Route: 048
     Dates: start: 20100801, end: 20100902
  2. VARENICLINE TARTRATE [Suspect]
     Dosage: UNK
     Route: 048
     Dates: start: 20100906, end: 20101001

REACTIONS (8)
  - NASOPHARYNGITIS [None]
  - DEHYDRATION [None]
  - PYREXIA [None]
  - ROAD TRAFFIC ACCIDENT [None]
  - LOSS OF CONSCIOUSNESS [None]
  - NAUSEA [None]
  - ILLUSION [None]
  - HEAT ILLNESS [None]
